FAERS Safety Report 17535429 (Version 2)
Quarter: 2020Q1

REPORT INFORMATION
  Report Type: Report from Study
  Country: EG (occurrence: EG)
  Receive Date: 20200312
  Receipt Date: 20200320
  Transmission Date: 20200409
  Serious: Yes (Other)
  Sender: FDA-Public Use
  Company Number: EG-EMD SERONO-9119345

PATIENT
  Age: 25 Year
  Sex: Male

DRUGS (2)
  1. PARACETAMOL [Concomitant]
     Active Substance: ACETAMINOPHEN
     Indication: PRODUCT USED FOR UNKNOWN INDICATION
  2. REBIF [Suspect]
     Active Substance: INTERFERON BETA-1A
     Indication: MULTIPLE SCLEROSIS
     Route: 058
     Dates: start: 20190602

REACTIONS (7)
  - Loss of consciousness [Recovered/Resolved]
  - Seizure [Recovered/Resolved]
  - Influenza like illness [Recovering/Resolving]
  - Alopecia [Recovering/Resolving]
  - Pyrexia [Recovered/Resolved]
  - Nasopharyngitis [Recovered/Resolved]
  - Hypoaesthesia [Not Recovered/Not Resolved]

NARRATIVE: CASE EVENT DATE: 20190602
